FAERS Safety Report 5574376-6 (Version None)
Quarter: 2007Q4

REPORT INFORMATION
  Report Type: 
  Country: None (occurrence: None)
  Receive Date: 20071221
  Receipt Date: 20071210
  Transmission Date: 20080405
  Serious: Yes (Other)
  Sender: FDA-Public Use
  Company Number: 2007-168999-NL

PATIENT
  Sex: Female

DRUGS (1)
  1. NUVARING [Suspect]
     Dates: start: 20050101, end: 20071101

REACTIONS (3)
  - FATIGUE [None]
  - PANIC ATTACK [None]
  - SPEECH DISORDER [None]
